FAERS Safety Report 8593696-4 (Version None)
Quarter: 2012Q3

REPORT INFORMATION
  Report Type: 
  Country: None (occurrence: None)
  Receive Date: 20120814
  Receipt Date: 20120806
  Transmission Date: 20120928
  Serious: Yes (Other)
  Sender: FDA-Public Use
  Company Number: TR-JHP PHARMACEUTICALS, LLC-JHP201200400

PATIENT
  Sex: Female

DRUGS (1)
  1. COLY-MYCIN M [Suspect]

REACTIONS (2)
  - QUADRIPARESIS [None]
  - RHABDOMYOLYSIS [None]
